FAERS Safety Report 19614030 (Version 1)
Quarter: 2021Q3

REPORT INFORMATION
  Report Type: Spontaneous
  Country: US (occurrence: US)
  Receive Date: 20210727
  Receipt Date: 20210727
  Transmission Date: 20211014
  Serious: No
  Sender: FDA-Public Use
  Company Number: US-TARO-2021TAR00740

PATIENT

DRUGS (1)
  1. MINOXIDIL (WOMEN) [Suspect]
     Active Substance: MINOXIDIL
     Indication: ALOPECIA
     Dosage: 1X/DAY, APPLY ONCE DAILY TO AFFECTED AREA FOR ABOUT A WEEK
     Route: 061

REACTIONS (2)
  - Palpitations [Unknown]
  - Chest discomfort [Unknown]
